FAERS Safety Report 9138248 (Version 2)
Quarter: 2013Q3

REPORT INFORMATION
  Report Type: Spontaneous
  Country: BR (occurrence: BR)
  Receive Date: 20130305
  Receipt Date: 20130903
  Transmission Date: 20140515
  Serious: Yes (Other)
  Sender: FDA-Public Use
  Company Number: BR-AMGEN-BRASP2013014704

PATIENT
  Age: 46 Year
  Sex: Female
  Weight: 65 kg

DRUGS (9)
  1. ENBREL [Suspect]
     Indication: RHEUMATOID ARTHRITIS
     Dosage: UNK
     Route: 065
     Dates: start: 201003, end: 2013
  2. ENBREL [Suspect]
     Dosage: 50 MG, WEEKLY
     Route: 058
     Dates: end: 201212
  3. SOTACOR [Concomitant]
     Dosage: UNK
  4. METFORMIN [Concomitant]
     Indication: DIABETES MELLITUS
     Dosage: 850 MG, 1X/DAY
  5. PREDNISONE [Concomitant]
     Dosage: UNK
  6. CALCIUM [Concomitant]
     Dosage: UNK
  7. ADEROGYL [Concomitant]
     Dosage: UNK
  8. SOTALOL [Concomitant]
     Indication: ARRHYTHMIA
     Dosage: 160 MG, 2X/DAY
     Dates: start: 2011
  9. FLUOXETINE [Concomitant]
     Indication: DEPRESSION
     Dosage: 20 MG, 1X/DAY (AT NIGHT)
     Dates: start: 2007

REACTIONS (6)
  - Diabetes mellitus [Unknown]
  - Pyrexia [Recovering/Resolving]
  - Blood cholesterol abnormal [Unknown]
  - Pain [Not Recovered/Not Resolved]
  - Influenza [Recovering/Resolving]
  - Pharyngitis [Recovering/Resolving]
